FAERS Safety Report 6721545-5 (Version None)
Quarter: 2010Q2

REPORT INFORMATION
  Report Type: 
  Country: None (occurrence: None)
  Receive Date: 20100512
  Receipt Date: 20100503
  Transmission Date: 20101027
  Serious: Yes (Hospitalization)
  Sender: FDA-Public Use
  Company Number: NO-ABBOTT-10P-114-0642006-00

PATIENT
  Sex: Male

DRUGS (3)
  1. HUMIRA [Suspect]
     Indication: ANKYLOSING SPONDYLITIS
     Route: 058
     Dates: start: 20100317, end: 20100414
  2. ZYRTEC [Concomitant]
     Indication: URTICARIA CHRONIC
  3. PREDNISOLONE [Concomitant]
     Indication: DRUG USE FOR UNKNOWN INDICATION

REACTIONS (5)
  - ANGIOEDEMA [None]
  - FATIGUE [None]
  - FEELING HOT [None]
  - RASH [None]
  - URTICARIA [None]
